FAERS Safety Report 5109357-X (Version None)
Quarter: 2006Q3

REPORT INFORMATION
  Report Type: 
  Country: None (occurrence: None)
  Receive Date: 20060920
  Receipt Date: 20050426
  Transmission Date: 20061208
  Serious: Yes (Death, Hospitalization, Other)
  Sender: FDA-Public Use
  Company Number: US-BRISTOL-MYERS SQUIBB COMPANY-12947750

PATIENT
  Age: 76 Year
  Sex: Male

DRUGS (13)
  1. ERBITUX [Suspect]
     Indication: COLORECTAL CANCER METASTATIC
     Dosage: INITIAL TX DATE: 08-NOV-04. PT HAD REC'D 7 CYCLES PRIOR TO EVENT.
     Route: 042
     Dates: start: 20050329, end: 20050329
  2. IRINOTECAN HCL [Suspect]
     Indication: COLORECTAL CANCER METASTATIC
     Dosage: INITIAL TX DATE: 08-NOV-04.  PT HAD REC'D 7 CYCLES PRIOR TO THE EVENT.
     Route: 042
     Dates: start: 20050329, end: 20050329
  3. OXYCONTIN [Concomitant]
     Indication: ABDOMINAL PAIN
     Dates: start: 20050418
  4. RANITIDINE [Concomitant]
     Dates: start: 20050418
  5. PROCHLORPERAZINE [Concomitant]
     Dates: start: 20050418
  6. MIRALAX [Concomitant]
     Indication: CONSTIPATION
  7. ALTACE [Concomitant]
  8. TOPROL-XL [Concomitant]
  9. MULTI-VITAMIN [Concomitant]
  10. AMBIEN [Concomitant]
     Indication: SLEEP DISORDER
  11. LIDOCAINE HCL VISCOUS [Concomitant]
     Indication: ORAL CANDIDIASIS
  12. SIMETHICONE [Concomitant]
  13. MARINOL [Concomitant]
     Indication: ANOREXIA
     Dates: start: 20050412

REACTIONS (10)
  - ANOREXIA [None]
  - ASCITES [None]
  - CONSTIPATION [None]
  - DEHYDRATION [None]
  - MALIGNANT NEOPLASM PROGRESSION [None]
  - PLEURAL EFFUSION [None]
  - PYREXIA [None]
  - RESPIRATORY FAILURE [None]
  - SMALL INTESTINAL OBSTRUCTION [None]
  - UROSEPSIS [None]
